FAERS Safety Report 20813558 (Version 2)
Quarter: 2022Q2

REPORT INFORMATION
  Report Type: Spontaneous
  Country: ES (occurrence: ES)
  Receive Date: 20220511
  Receipt Date: 20220524
  Transmission Date: 20220721
  Serious: Yes (Hospitalization)
  Sender: FDA-Public Use
  Company Number: ES-LUPIN PHARMACEUTICALS INC.-2022-06833

PATIENT
  Age: 34 Year
  Sex: Female

DRUGS (3)
  1. METHYLERGONOVINE [Suspect]
     Active Substance: METHYLERGONOVINE
     Indication: Uterine atony
     Dosage: 0.2 MG
     Route: 030
  2. MISOPROSTOL [Concomitant]
     Active Substance: MISOPROSTOL
     Indication: Uterine atony
     Dosage: 0.8 MG
     Route: 054
  3. CARBETOCIN [Concomitant]
     Active Substance: CARBETOCIN
     Indication: Uterine atony
     Dosage: 0.1 MG
     Route: 042

REACTIONS (1)
  - Atrioventricular block second degree [Recovered/Resolved]
